FAERS Safety Report 25598531 (Version 1)
Quarter: 2025Q3

REPORT INFORMATION
  Report Type: Spontaneous
  Country: US (occurrence: US)
  Receive Date: 20250723
  Receipt Date: 20250723
  Transmission Date: 20251020
  Serious: Yes (Death, Hospitalization)
  Sender: AMGEN
  Company Number: US-AMGEN-USASP2025142333

PATIENT
  Age: 78 Year
  Sex: Female

DRUGS (6)
  1. RITUXIMAB [Suspect]
     Active Substance: RITUXIMAB
     Indication: Hypersensitivity pneumonitis
     Route: 065
  2. PEGFILGRASTIM [Suspect]
     Active Substance: PEGFILGRASTIM
     Indication: Ductal adenocarcinoma of pancreas
     Route: 065
  3. OXALIPLATIN [Suspect]
     Active Substance: OXALIPLATIN
     Indication: Ductal adenocarcinoma of pancreas
     Route: 065
  4. LEUCOVORIN [Suspect]
     Active Substance: LEUCOVORIN\LEUCOVORIN CALCIUM
     Indication: Ductal adenocarcinoma of pancreas
     Route: 065
  5. FLUOROURACIL [Suspect]
     Active Substance: FLUOROURACIL
     Indication: Ductal adenocarcinoma of pancreas
     Route: 065
  6. IRINOTECAN [Suspect]
     Active Substance: IRINOTECAN
     Indication: Ductal adenocarcinoma of pancreas
     Route: 065

REACTIONS (12)
  - Death [Fatal]
  - Respiratory failure [Unknown]
  - Lung cyst [Unknown]
  - Acute respiratory distress syndrome [Unknown]
  - Renal failure [Unknown]
  - Multiple organ dysfunction syndrome [Unknown]
  - Interstitial lung disease [Unknown]
  - Drug hypersensitivity [Unknown]
  - Mouth ulceration [Unknown]
  - Oral mucosal blistering [Unknown]
  - Drug ineffective [Unknown]
  - Off label use [Unknown]
